FAERS Safety Report 8965809 (Version 1)
Quarter: 2012Q4

REPORT INFORMATION
  Report Type: Spontaneous
  Country: US (occurrence: None)
  Receive Date: 20121206
  Receipt Date: 20121206
  Transmission Date: 20130627
  Serious: Yes (Other)
  Sender: FDA-Public Use
  Company Number: 100624-023367

PATIENT
  Age: 41 Year
  Sex: Female

DRUGS (6)
  1. SHEER COVER MINERAL FOUNDATION SPF 15 [Suspect]
     Dates: start: 20100518
  2. SHEER COVER NOURISHING MOISTURIZER SPF 15 [Suspect]
     Dates: start: 20100518
  3. HEART MEDICATION [Concomitant]
  4. SEIZURE MEDS [Concomitant]
  5. BENADRYL [Concomitant]
  6. NITRATES [Concomitant]

REACTIONS (4)
  - Eye swelling [None]
  - Eye pruritus [None]
  - Chest pain [None]
  - Dyspnoea [None]
